FAERS Safety Report 8019139-7 (Version None)
Quarter: 2011Q4

REPORT INFORMATION
  Report Type: 
  Country: None (occurrence: None)
  Receive Date: 20111227
  Receipt Date: 20111209
  Transmission Date: 20120403
  Serious: Yes (Death)
  Sender: FDA-Public Use
  Company Number: UTC-013321

PATIENT
  Age: 74 Year
  Sex: Male
  Weight: 72.7 kg

DRUGS (2)
  1. LETAIRIS [Concomitant]
  2. TYVASO [Suspect]
     Indication: PULMONARY ARTERIAL HYPERTENSION
     Dosage: 18-72 MICROGRAMS (4 IN 1 D),INHALATION
     Route: 055
     Dates: start: 20100128

REACTIONS (1)
  - DEATH [None]
